FAERS Safety Report 4614054-0 (Version None)
Quarter: 2005Q1

REPORT INFORMATION
  Report Type: 
  Country: None (occurrence: None)
  Receive Date: 20050316
  Receipt Date: 20050302
  Transmission Date: 20050727
  Serious: Yes (Death, Hospitalization, Other)
  Sender: FDA-Public Use
  Company Number: EWC050342999

PATIENT
  Age: 34 Year
  Sex: Male

DRUGS (4)
  1. ZYPREXA [Suspect]
     Indication: SCHIZOPHRENIA
     Dosage: 30 MG DAY
     Dates: start: 20030101, end: 20050207
  2. TOPIRAMATE [Concomitant]
  3. HEPARIN [Concomitant]
  4. ARIPIPRAZOLE [Concomitant]

REACTIONS (9)
  - BLOOD THYROID STIMULATING HORMONE INCREASED [None]
  - COLITIS ISCHAEMIC [None]
  - CONDITION AGGRAVATED [None]
  - DRUG TOXICITY [None]
  - HYPOTHYROIDISM [None]
  - PSYCHOTIC DISORDER [None]
  - PYREXIA [None]
  - RENAL FAILURE [None]
  - SHOCK [None]
